FAERS Safety Report 8088031-4 (Version None)
Quarter: 2012Q1

REPORT INFORMATION
  Report Type: 
  Country: None (occurrence: None)
  Receive Date: 20120128
  Receipt Date: 20110526
  Transmission Date: 20120608
  Serious: No
  Sender: FDA-Public Use
  Company Number: US-ABBOTT-11P-163-0728950-00

PATIENT
  Age: 56 Year
  Sex: Female

DRUGS (2)
  1. UNKNOWN MEDICATION [Concomitant]
     Indication: PRODUCT USED FOR UNKNOWN INDICATION
  2. HUMIRA [Suspect]
     Indication: RHEUMATOID ARTHRITIS
     Dates: start: 20030101

REACTIONS (5)
  - HYPERTENSION [None]
  - WEIGHT INCREASED [None]
  - BREAST PAIN [None]
  - DEPRESSION [None]
  - BLOOD CHOLESTEROL INCREASED [None]
